FAERS Safety Report 9284020 (Version 2)
Quarter: 2013Q2

REPORT INFORMATION
  Report Type: Spontaneous
  Country: ES (occurrence: ES)
  Receive Date: 20130510
  Receipt Date: 20130606
  Transmission Date: 20140414
  Serious: Yes (Hospitalization, Other)
  Sender: FDA-Public Use
  Company Number: ES-ACTAVIS-2013-08663

PATIENT
  Age: 78 Year
  Sex: Female

DRUGS (5)
  1. PACLITAXEL (UNKNOWN) [Suspect]
     Indication: PANCREATIC CARCINOMA
     Dosage: 136 MG, UNKNOWN
     Route: 042
     Dates: start: 20130326
  2. METAMIZOLE [Concomitant]
     Indication: PAIN
     Route: 065
  3. KREON                              /00014701/ [Concomitant]
     Indication: PRODUCT USED FOR UNKNOWN INDICATION
     Dosage: 7 DF, DAILY
     Route: 065
  4. HIDROFEROL [Concomitant]
     Indication: PRODUCT USED FOR UNKNOWN INDICATION
     Dosage: 0.226 MG, DAILY
     Route: 065
  5. LOPERAMIDE [Concomitant]
     Indication: DIARRHOEA
     Dosage: 2 MG, PRN
     Route: 065

REACTIONS (4)
  - Cyanosis [Recovered/Resolved]
  - Back pain [Recovered/Resolved]
  - Flushing [Recovered/Resolved]
  - Malaise [Recovered/Resolved]
